FAERS Safety Report 13361467 (Version 2)
Quarter: 2017Q3

REPORT INFORMATION
  Report Type: Report from Study
  Country: None (occurrence: US)
  Receive Date: 20170323
  Receipt Date: 20170707
  Transmission Date: 20171127
  Serious: Yes (Other)
  Sender: FDA-Public Use
  Company Number: US-ABBVIE-17K-163-1909741-00

PATIENT
  Sex: Male

DRUGS (2)
  1. HUMIRA [Suspect]
     Active Substance: ADALIMUMAB
     Indication: ANKYLOSING SPONDYLITIS
     Route: 058
     Dates: start: 20170309
  2. HUMIRA [Suspect]
     Active Substance: ADALIMUMAB
     Indication: ANKYLOSING SPONDYLITIS
     Route: 058
     Dates: start: 20090314, end: 20130314

REACTIONS (15)
  - Wound complication [Unknown]
  - Joint range of motion decreased [Unknown]
  - Oropharyngeal pain [Unknown]
  - Arthralgia [Unknown]
  - Neck pain [Unknown]
  - Mobility decreased [Unknown]
  - Fatigue [Unknown]
  - Infected skin ulcer [Unknown]
  - Loss of personal independence in daily activities [Unknown]
  - Rash [Unknown]
  - Back pain [Unknown]
  - General physical health deterioration [Unknown]
  - Nasopharyngitis [Unknown]
  - Musculoskeletal stiffness [Unknown]
  - Joint swelling [Unknown]

NARRATIVE: CASE EVENT DATE: 2017
